FAERS Safety Report 8004334-3 (Version None)
Quarter: 2011Q4

REPORT INFORMATION
  Report Type: 
  Country: None (occurrence: None)
  Receive Date: 20111223
  Receipt Date: 20111220
  Transmission Date: 20120403
  Serious: No
  Sender: FDA-Public Use
  Company Number: US-BIOGENIDEC-2011BI048141

PATIENT
  Sex: Male

DRUGS (3)
  1. TYSABRI [Suspect]
     Indication: MULTIPLE SCLEROSIS
     Route: 042
     Dates: start: 20111219
  2. GILENYA [Concomitant]
  3. TYSABRI [Suspect]
     Route: 042
     Dates: start: 20081111, end: 20110328

REACTIONS (4)
  - BALANCE DISORDER [None]
  - ALOPECIA [None]
  - FEELING ABNORMAL [None]
  - BLOOD PRESSURE FLUCTUATION [None]
